FAERS Safety Report 13205941 (Version 4)
Quarter: 2017Q1

REPORT INFORMATION
  Report Type: Report from Study
  Country: BR (occurrence: BR)
  Receive Date: 20170209
  Receipt Date: 20170320
  Transmission Date: 20170428
  Serious: Yes (Hospitalization, Other)
  Sender: FDA-Public Use
  Company Number: BR-ALEXION-A201700398

PATIENT
  Age: 1 Year
  Sex: Female
  Weight: 9.5 kg

DRUGS (4)
  1. SOLIRIS [Suspect]
     Active Substance: ECULIZUMAB
     Dosage: 300 MG, Q3W
     Route: 042
  2. VARICELLA VACCINE, LIVE [Concomitant]
     Active Substance: VARICELLA-ZOSTER VIRUS STRAIN OKA/MERCK LIVE ANTIGEN
     Indication: IMMUNISATION
     Route: 065
  3. SOLIRIS [Suspect]
     Active Substance: ECULIZUMAB
     Indication: HAEMOLYTIC URAEMIC SYNDROME
     Dosage: 300 MG, QW
     Route: 042
     Dates: start: 20161202, end: 20161209
  4. SOLIRIS [Suspect]
     Active Substance: ECULIZUMAB
     Dosage: 300 MG, Q2W
     Route: 042
     Dates: start: 20161230

REACTIONS (18)
  - Generalised oedema [Not Recovered/Not Resolved]
  - Blood lactate dehydrogenase increased [Recovered/Resolved]
  - Pyrexia [Recovered/Resolved]
  - Pulmonary oedema [Recovered/Resolved]
  - Eyelid oedema [Recovering/Resolving]
  - Platelet count decreased [Recovering/Resolving]
  - Haemolysis [Not Recovered/Not Resolved]
  - Platelet count abnormal [Not Recovered/Not Resolved]
  - Hypertensive crisis [Unknown]
  - Renal impairment [Recovering/Resolving]
  - Vitamin B12 deficiency [Unknown]
  - Blood creatinine increased [Unknown]
  - Haematuria [Recovering/Resolving]
  - Skin lesion [Recovered/Resolved]
  - Incorrect dose administered [Unknown]
  - Reticulocyte count increased [Recovering/Resolving]
  - Oliguria [Unknown]
  - Blood lactate dehydrogenase abnormal [Not Recovered/Not Resolved]

NARRATIVE: CASE EVENT DATE: 20170131
